FAERS Safety Report 11272663 (Version 3)
Quarter: 2015Q4

REPORT INFORMATION
  Report Type: Report from Study
  Country: FR (occurrence: FR)
  Receive Date: 20150715
  Receipt Date: 20151013
  Transmission Date: 20160304
  Serious: Yes (Other)
  Sender: FDA-Public Use
  Company Number: FR-ROCHE-1606623

PATIENT
  Age: 66 Year
  Sex: Male
  Weight: 70 kg

DRUGS (5)
  1. ESOMEPRAZOLE [Concomitant]
     Active Substance: ESOMEPRAZOLE
     Indication: GASTRITIS
     Route: 048
     Dates: start: 20150624
  2. VEMURAFENIB [Suspect]
     Active Substance: VEMURAFENIB
     Indication: NEOPLASM MALIGNANT
     Dosage: CYCLE 1?LAST ADMINISTRATION ON 08/JUL/2015.?CUMULATIVE DOSE SINCE FIRST ADMINISTRATION OF 27840 MG.
     Route: 048
     Dates: start: 20150624, end: 20150708
  3. PREDNISOLONE. [Concomitant]
     Active Substance: PREDNISOLONE
     Route: 065
     Dates: start: 20150409
  4. VEMURAFENIB [Suspect]
     Active Substance: VEMURAFENIB
     Dosage: CORRESPONGING DOSE:1440 MG/DAY
     Route: 048
     Dates: start: 20150722, end: 20150728
  5. CORTANCYL [Concomitant]
     Active Substance: PREDNISONE
     Indication: BRAIN OEDEMA
     Route: 048
     Dates: start: 20150624

REACTIONS (1)
  - Renal failure [Recovered/Resolved]

NARRATIVE: CASE EVENT DATE: 20150707
